FAERS Safety Report 5826718-1 (Version None)
Quarter: 2008Q3

REPORT INFORMATION
  Report Type: 
  Country: None (occurrence: None)
  Receive Date: 20080730
  Receipt Date: 20080717
  Transmission Date: 20090109
  Serious: Yes (Hospitalization)
  Sender: FDA-Public Use
  Company Number: BE-ASTRAZENECA-2008AC01695

PATIENT
  Age: 19359 Day
  Sex: Female

DRUGS (6)
  1. SEROQUEL [Suspect]
     Indication: SCHIZOPHRENIA
     Route: 048
     Dates: start: 20080604, end: 20080604
  2. SEROQUEL [Suspect]
     Route: 048
     Dates: start: 20080605, end: 20080605
  3. SEROQUEL [Suspect]
     Route: 048
     Dates: start: 20080606, end: 20080612
  4. SEROQUEL [Suspect]
     Route: 048
     Dates: start: 20080618, end: 20080701
  5. EFFEXOR [Concomitant]
     Indication: ANTIDEPRESSANT THERAPY
     Route: 048
  6. UNI-TRANXENE [Concomitant]
     Indication: DRUG THERAPY
     Route: 048

REACTIONS (1)
  - PSYCHOTIC DISORDER [None]
